FAERS Safety Report 6968405-2 (Version None)
Quarter: 2010Q3

REPORT INFORMATION
  Report Type: 
  Country: None (occurrence: None)
  Receive Date: 20100907
  Receipt Date: 20100824
  Transmission Date: 20110219
  Serious: Yes (Hospitalization, Other)
  Sender: FDA-Public Use
  Company Number: PHHY2010JP56277

PATIENT
  Sex: Male

DRUGS (9)
  1. AFINITOR [Suspect]
     Indication: METASTATIC RENAL CELL CARCINOMA
     Dosage: 10 MG DAILY
     Route: 048
     Dates: start: 20100507
  2. AFINITOR [Suspect]
     Dosage: 5 MG DAILY
     Route: 048
     Dates: start: 20100517, end: 20100518
  3. AFINITOR [Suspect]
     Dosage: 5 MG DAILY
     Route: 048
     Dates: start: 20100526, end: 20100702
  4. AFINITOR [Suspect]
     Dosage: 5 MG DAILY
     Route: 048
     Dates: start: 20100721
  5. SUNITINIB MALATE [Concomitant]
     Indication: METASTATIC RENAL CELL CARCINOMA
     Dosage: 50 MG, UNK
     Route: 048
     Dates: start: 20090721, end: 20100409
  6. SORAFENIB TOSILATE [Concomitant]
     Indication: METASTATIC RENAL CELL CARCINOMA
     Dosage: 800 MG, UNK
     Route: 048
     Dates: start: 20090603
  7. ZYLORIC ^FRESENIUS^ [Concomitant]
     Dosage: 100 MG, UNK
     Route: 048
  8. THYRADIN [Concomitant]
     Dosage: 50 UG, UNK
     Route: 048
  9. PREDONINE [Concomitant]
     Dosage: 30 MG DAILY
     Dates: start: 20100713

REACTIONS (9)
  - ANAEMIA [None]
  - BLOOD ALKALINE PHOSPHATASE INCREASED [None]
  - COUGH [None]
  - INTERSTITIAL LUNG DISEASE [None]
  - LYMPHOCYTE COUNT DECREASED [None]
  - MALIGNANT NEOPLASM PROGRESSION [None]
  - METASTASES TO LUNG [None]
  - PLATELET COUNT DECREASED [None]
  - PYREXIA [None]
